FAERS Safety Report 10760767 (Version 1)
Quarter: 2015Q1

REPORT INFORMATION
  Report Type: Spontaneous
  Country: IT (occurrence: None)
  Receive Date: 20150202
  Receipt Date: 20150202
  Transmission Date: 20150721
  Serious: Yes (Hospitalization)
  Sender: FDA-Public Use
  Company Number: IT-2015VAL000066

PATIENT
  Age: 66 Year
  Sex: Female

DRUGS (1)
  1. CARBAMAZEPINE (CARBAMAZEPINE) UNKNOWN [Suspect]
     Active Substance: CARBAMAZEPINE
     Indication: PRODUCT USED FOR UNKNOWN INDICATION
     Dosage: SINGLE, EXTENDED-RELEASE TABLETS
     Route: 048

REACTIONS (8)
  - Intentional overdose [None]
  - Nodal rhythm [None]
  - Bradycardia [None]
  - Trismus [None]
  - Vomiting [None]
  - Eye movement disorder [None]
  - Disorientation [None]
  - Mydriasis [None]
